FAERS Safety Report 6631619-5 (Version None)
Quarter: 2010Q1

REPORT INFORMATION
  Report Type: 
  Country: None (occurrence: None)
  Receive Date: 20100312
  Receipt Date: 20100302
  Transmission Date: 20100710
  Serious: Yes (Death, Hospitalization)
  Sender: FDA-Public Use
  Company Number: IN-PFIZER INC-2010027008

PATIENT
  Age: 76 Year
  Sex: Male
  Weight: 55 kg

DRUGS (2)
  1. SUTENT [Suspect]
     Indication: METASTATIC RENAL CELL CARCINOMA
     Dosage: 50 MG, 1X/DAY FOR 28 DAYS
     Route: 048
     Dates: start: 20090821
  2. ZOMETA [Concomitant]
     Dosage: UNK
     Dates: start: 20090824

REACTIONS (4)
  - DEATH [None]
  - PYREXIA [None]
  - SOMNOLENCE [None]
  - VOMITING [None]
